FAERS Safety Report 18974135 (Version 1)
Quarter: 2021Q1

REPORT INFORMATION
  Report Type: Spontaneous
  Country: BE (occurrence: BE)
  Receive Date: 20210305
  Receipt Date: 20210305
  Transmission Date: 20210420
  Serious: Yes (Other)
  Sender: FDA-Public Use
  Company Number: BE-ANIPHARMA-2021-BE-000011

PATIENT
  Age: 43 Year
  Sex: Female

DRUGS (1)
  1. CANDESARTAN CILEXETIL TABLETS [Suspect]
     Active Substance: CANDESARTAN CILEXETIL
     Indication: MIGRAINE PROPHYLAXIS
     Dosage: 1 DF DAILY
     Route: 065
     Dates: start: 20200608, end: 20200708

REACTIONS (3)
  - Orthostatic hypotension [Unknown]
  - Syncope [Unknown]
  - Product use in unapproved indication [Recovered/Resolved]

NARRATIVE: CASE EVENT DATE: 2020
